FAERS Safety Report 4645235-8 (Version None)
Quarter: 2005Q2

REPORT INFORMATION
  Report Type: 
  Country: None (occurrence: None)
  Receive Date: 20050426
  Receipt Date: 20050419
  Transmission Date: 20051028
  Serious: Yes (Other)
  Sender: FDA-Public Use
  Company Number: NL-GLAXOSMITHKLINE-B0378936A

PATIENT
  Sex: Female

DRUGS (2)
  1. EPIVIR [Suspect]
     Dosage: 300U PER DAY
     Dates: start: 20030327
  2. KALETRA [Suspect]
     Dosage: 1000U PER DAY
     Route: 048
     Dates: start: 20050202

REACTIONS (1)
  - ABORTION SPONTANEOUS [None]
